FAERS Safety Report 22191701 (Version 1)
Quarter: 2023Q2

REPORT INFORMATION
  Report Type: Spontaneous
  Country: DK (occurrence: DK)
  Receive Date: 20230410
  Receipt Date: 20230410
  Transmission Date: 20230721
  Serious: Yes (Other)
  Sender: FDA-Public Use
  Company Number: DK-TEVA-2023-DK-2866353

PATIENT
  Age: 71 Year
  Sex: Female

DRUGS (22)
  1. GABAPENTIN [Suspect]
     Active Substance: GABAPENTIN
     Indication: Herpes zoster
     Dosage: 3 DOSAGE FORM, QD (THREE PER DAY)
     Route: 065
  2. GABAPENTIN [Suspect]
     Active Substance: GABAPENTIN
     Dosage: UNK UNK, QW
     Route: 065
  3. GABAPENTIN [Suspect]
     Active Substance: GABAPENTIN
     Dosage: SLOWLY INCREASED TO GABAPENTIN X6
     Route: 065
  4. GABAPENTIN [Suspect]
     Active Substance: GABAPENTIN
     Dosage: UNK UNK, QD
     Route: 065
  5. GABAPENTIN [Suspect]
     Active Substance: GABAPENTIN
     Indication: Herpes zoster
     Dosage: UNK, QW
     Route: 065
  6. GABAPENTIN [Suspect]
     Active Substance: GABAPENTIN
     Dosage: SLOWLY INCREASED TO GABAPENTIN X6
     Route: 065
  7. GABAPENTIN [Suspect]
     Active Substance: GABAPENTIN
     Dosage: 300 MILLIGRAM DAILY
     Route: 065
  8. GABAPENTIN [Suspect]
     Active Substance: GABAPENTIN
     Dosage: 3 DOSAGE FORM, QD (THREE PER DAY)
     Route: 065
  9. FISH OIL\OMEGA-3 FATTY ACIDS [Concomitant]
     Active Substance: FISH OIL\OMEGA-3 FATTY ACIDS
     Indication: Product used for unknown indication
     Dosage: UNK
     Route: 065
  10. VITAMIN C [Concomitant]
     Active Substance: ASCORBIC ACID
     Indication: Product used for unknown indication
     Dosage: UNK
     Route: 065
  11. VITAEPRO [Concomitant]
     Indication: Product used for unknown indication
     Dosage: UNK
     Route: 065
  12. MAXIDEX [Concomitant]
     Active Substance: DEXAMETHASONE
     Indication: Eye irritation
     Dosage: 1 MILLIGRAM DAILY;
     Route: 065
  13. VITAMIN D [Concomitant]
     Active Substance: VITAMIN D NOS
     Indication: Product used for unknown indication
     Dosage: UNK
     Route: 065
  14. HYPROMELLOSES [Concomitant]
     Active Substance: HYPROMELLOSES
     Indication: Eye irritation
     Dosage: 3-4 TIMES PER DAY
     Route: 065
  15. CALCIUM [Concomitant]
     Active Substance: CALCIUM
     Indication: Wrist fracture
     Dosage: UNK
     Route: 065
  16. MAGNESIUM [Concomitant]
     Active Substance: MAGNESIUM
     Indication: Muscle spasms
     Dosage: UNK
     Route: 065
  17. MAGNESIUM [Concomitant]
     Active Substance: MAGNESIUM
     Dosage: UNK
     Route: 065
  18. SYSTANE BALANCE [Concomitant]
     Active Substance: PROPYLENE GLYCOL
     Indication: Eye irritation
     Dosage: 2-3 TIMES PER DAY
     Route: 065
  19. ACETAMINOPHEN [Concomitant]
     Active Substance: ACETAMINOPHEN
     Indication: Knee arthroplasty
     Dosage: 3X2 PER DAY
     Route: 065
  20. ACETAMINOPHEN [Concomitant]
     Active Substance: ACETAMINOPHEN
     Indication: Wrist fracture
     Dosage: 6 DOSAGE FORM, MAXIMUM OF 6 TABLETS PER DAY
     Route: 065
  21. ZOLPIDEM TARTRATE [Concomitant]
     Active Substance: ZOLPIDEM TARTRATE
     Indication: Pain of skin
     Dosage: UNK
     Route: 065
  22. Artelac [Concomitant]
     Indication: Eye irritation
     Dosage: 1,6 MG/0.5 ML
     Route: 065

REACTIONS (9)
  - Memory impairment [Recovered/Resolved]
  - Disturbance in attention [Recovered/Resolved]
  - Discomfort [Unknown]
  - Blood pressure increased [Unknown]
  - Lethargy [Unknown]
  - Feeling abnormal [Unknown]
  - Somnolence [Unknown]
  - Dizziness [Recovered/Resolved]
  - Intentional product use issue [Unknown]
